FAERS Safety Report 15782558 (Version 1)
Quarter: 2019Q1

REPORT INFORMATION
  Report Type: Spontaneous
  Country: US (occurrence: US)
  Receive Date: 20190102
  Receipt Date: 20190102
  Transmission Date: 20190417
  Serious: Yes (Hospitalization, Other)
  Sender: FDA-Public Use
  Company Number: US-TORRENT-00007343

PATIENT
  Sex: Female

DRUGS (1)
  1. LOSARTAN. [Suspect]
     Active Substance: LOSARTAN
     Indication: BLOOD PRESSURE INCREASED
     Dosage: UNKNOWN

REACTIONS (3)
  - Cerebral haemorrhage [Unknown]
  - Blood pressure increased [Unknown]
  - Head injury [Unknown]

NARRATIVE: CASE EVENT DATE: 201811
